FAERS Safety Report 7192696-9 (Version None)
Quarter: 2010Q4

REPORT INFORMATION
  Report Type: 
  Country: None (occurrence: None)
  Receive Date: 20101223
  Receipt Date: 20101216
  Transmission Date: 20110411
  Serious: Yes (Hospitalization, Other)
  Sender: FDA-Public Use
  Company Number: US-JNJCH-2010028993

PATIENT
  Sex: Female

DRUGS (1)
  1. MULTI-SYMPTOM ROLAIDS PLUS ANTI-GAS SOFTCHEWS FRUIT [Suspect]
     Indication: ABDOMINAL DISCOMFORT
     Dosage: TEXT:ONE AT A TIME
     Route: 048
     Dates: start: 20101011, end: 20101012

REACTIONS (3)
  - CONDITION AGGRAVATED [None]
  - DIVERTICULITIS [None]
  - PRODUCT TASTE ABNORMAL [None]
